FAERS Safety Report 14562844 (Version 1)
Quarter: 2018Q1

REPORT INFORMATION
  Report Type: Spontaneous
  Country: CA (occurrence: CA)
  Receive Date: 20180222
  Receipt Date: 20180222
  Transmission Date: 20180509
  Serious: Yes (Other)
  Sender: FDA-Public Use
  Company Number: CA-PFIZER INC-2018074057

PATIENT
  Age: 28 Year
  Sex: Female

DRUGS (7)
  1. METHOTREXATE SODIUM. [Suspect]
     Active Substance: METHOTREXATE SODIUM
     Dosage: UNK
     Route: 065
  2. ENBREL [Suspect]
     Active Substance: ETANERCEPT
     Dosage: 25 MG, UNK
     Route: 065
  3. HUMIRA [Suspect]
     Active Substance: ADALIMUMAB
     Dosage: UNK
     Route: 065
  4. APO-PREDNISONE [Suspect]
     Active Substance: PREDNISONE
     Dosage: UNK
     Route: 065
  5. ENBREL [Suspect]
     Active Substance: ETANERCEPT
     Indication: RHEUMATOID ARTHRITIS
     Dosage: 50 MG, UNK
     Route: 065
  6. ENBREL [Suspect]
     Active Substance: ETANERCEPT
     Indication: RHEUMATOID ARTHRITIS
     Dosage: UNK
     Route: 065
  7. FOLIC ACID. [Concomitant]
     Active Substance: FOLIC ACID
     Dosage: 1 MG, QD

REACTIONS (30)
  - Drug intolerance [Recovered/Resolved]
  - Feeling abnormal [Recovered/Resolved]
  - Irritability [Recovered/Resolved]
  - Joint warmth [Recovered/Resolved]
  - Nausea [Recovered/Resolved]
  - Pain in extremity [Recovered/Resolved]
  - Upper respiratory tract infection [Recovered/Resolved]
  - Chest discomfort [Recovered/Resolved]
  - Joint stiffness [Recovered/Resolved]
  - Pain [Recovered/Resolved]
  - Injection site erythema [Recovered/Resolved]
  - Fatigue [Recovered/Resolved]
  - Joint range of motion decreased [Recovered/Resolved]
  - Malaise [Recovered/Resolved]
  - Osteopenia [Recovered/Resolved]
  - Sinusitis [Recovered/Resolved]
  - Nasopharyngitis [Recovered/Resolved]
  - Hypoaesthesia [Recovered/Resolved]
  - Arthralgia [Recovered/Resolved]
  - Arthropathy [Recovered/Resolved]
  - Synovial disorder [Recovered/Resolved]
  - Nephrolithiasis [Recovered/Resolved]
  - Weight increased [Recovered/Resolved]
  - Product use issue [Recovered/Resolved]
  - Joint swelling [Recovered/Resolved]
  - Injection site swelling [Recovered/Resolved]
  - Foot fracture [Recovered/Resolved]
  - Neuropathy peripheral [Recovered/Resolved]
  - Paraesthesia [Recovered/Resolved]
  - Drug effect incomplete [Recovered/Resolved]
